FAERS Safety Report 8414652-2 (Version None)
Quarter: 2012Q2

REPORT INFORMATION
  Report Type: 
  Country: None (occurrence: None)
  Receive Date: 20120605
  Receipt Date: 20120530
  Transmission Date: 20120825
  Serious: Yes (Other)
  Sender: FDA-Public Use
  Company Number: US-PFIZER INC-2012131172

PATIENT
  Sex: Female
  Weight: 75.737 kg

DRUGS (10)
  1. PRISTIQ [Suspect]
     Indication: DEPRESSION
  2. LEXAPRO [Suspect]
     Indication: DEPRESSION
     Dosage: UNK
  3. LISINOPRIL [Concomitant]
     Indication: HYPERTENSION
     Dosage: 10 MG, UNK
  4. PRISTIQ [Suspect]
     Indication: SUICIDAL IDEATION
  5. PRISTIQ [Suspect]
     Indication: CRYING
     Dosage: 100 MG, UNK
  6. CYMBALTA [Suspect]
     Indication: DEPRESSION
     Dosage: UNK
  7. WELLBUTRIN [Suspect]
     Indication: DEPRESSION
     Dosage: UNK
  8. EFFEXOR XR [Suspect]
     Indication: DEPRESSION
     Dosage: UNK
  9. XANAX [Suspect]
     Indication: DEPRESSION
     Dosage: UNK
  10. PROZAC [Suspect]
     Indication: DEPRESSION
     Dosage: UNK

REACTIONS (14)
  - SUICIDAL IDEATION [None]
  - HALLUCINATION [None]
  - NAUSEA [None]
  - SWELLING [None]
  - BLOOD TRIGLYCERIDES INCREASED [None]
  - FLUID RETENTION [None]
  - COGNITIVE DISORDER [None]
  - MIGRAINE [None]
  - DIZZINESS [None]
  - LOW DENSITY LIPOPROTEIN INCREASED [None]
  - DRUG INEFFECTIVE [None]
  - WEIGHT INCREASED [None]
  - BLOOD GLUCOSE INCREASED [None]
  - HIGH DENSITY LIPOPROTEIN INCREASED [None]
